FAERS Safety Report 4288734-3 (Version None)
Quarter: 2004Q1

REPORT INFORMATION
  Report Type: 
  Country: None (occurrence: None)
  Receive Date: 20040205
  Receipt Date: 20040121
  Transmission Date: 20041129
  Serious: Yes (Hospitalization)
  Sender: FDA-Public Use
  Company Number: JP-JNJFOC-20030802172

PATIENT
  Age: 44 Year
  Sex: Male
  Weight: 52 kg

DRUGS (5)
  1. REMICADE [Suspect]
     Indication: CROHN'S DISEASE
     Dosage: 30 MG, 1 IN 1 DAY, INTRAVENOUS
     Route: 042
     Dates: start: 20030714, end: 20030714
  2. PREDNISOLONE [Suspect]
     Indication: CROHN'S DISEASE
     Dosage: 30 MG, IN 1 DAY, ORAL; 20 MG, IN 1 DAY, ORAL; 10 MG, IN 1 DAY, ORAL
     Route: 048
     Dates: start: 20030614, end: 20030622
  3. PREDNISOLONE [Suspect]
     Indication: CROHN'S DISEASE
     Dosage: 30 MG, IN 1 DAY, ORAL; 20 MG, IN 1 DAY, ORAL; 10 MG, IN 1 DAY, ORAL
     Route: 048
     Dates: start: 20030623, end: 20030706
  4. PREDNISOLONE [Suspect]
     Indication: CROHN'S DISEASE
     Dosage: 30 MG, IN 1 DAY, ORAL; 20 MG, IN 1 DAY, ORAL; 10 MG, IN 1 DAY, ORAL
     Route: 048
     Dates: start: 20030707, end: 20030724
  5. PENTASA [Concomitant]

REACTIONS (4)
  - DIARRHOEA [None]
  - DRUG INTERACTION [None]
  - PAIN [None]
  - TUBERCULOSIS GASTROINTESTINAL [None]
